FAERS Safety Report 18002023 (Version 3)
Quarter: 2020Q3

REPORT INFORMATION
  Report Type: Spontaneous
  Country: NL (occurrence: NL)
  Receive Date: 20200709
  Receipt Date: 20200729
  Transmission Date: 20201103
  Serious: Yes (Other)
  Sender: FDA-Public Use
  Company Number: NVSC2020NL185997

PATIENT
  Sex: Male
  Weight: 110 kg

DRUGS (15)
  1. ONDANSETRON [Concomitant]
     Active Substance: ONDANSETRON
     Indication: ANTIEMETIC SUPPORTIVE CARE
     Dosage: 8 MG, ONCE
     Route: 048
     Dates: start: 20200402, end: 20200402
  2. PENTAMIDINE [Concomitant]
     Active Substance: PENTAMIDINE
     Indication: PRODUCT USED FOR UNKNOWN INDICATION
     Dosage: 300 MG, Q1MONTH
     Route: 055
     Dates: start: 20200405
  3. CYCLOPHOSPHAMIDE. [Suspect]
     Active Substance: CYCLOPHOSPHAMIDE
     Indication: BONE MARROW CONDITIONING REGIMEN
     Dosage: UNK UNK, QD
     Route: 042
  4. FLUDARABINE PHOSPHATE. [Suspect]
     Active Substance: FLUDARABINE PHOSPHATE
     Indication: BONE MARROW CONDITIONING REGIMEN
     Dosage: UNK UNK, QD
     Route: 042
  5. MESNA. [Suspect]
     Active Substance: MESNA
     Indication: PROPHYLAXIS
     Dosage: UNK, TID (TOTAL OF 9 DOSES)
     Route: 042
  6. VALACICLOVIR [Concomitant]
     Active Substance: VALACYCLOVIR HYDROCHLORIDE
     Indication: HERPES ZOSTER
     Dosage: 500 MG, BID
     Route: 048
     Dates: start: 20190129, end: 20200225
  7. NACL [Concomitant]
     Active Substance: SODIUM CHLORIDE
     Indication: FLUID REPLACEMENT
     Dosage: 1000 ML (TOTAL)
     Route: 042
     Dates: start: 20200402, end: 20200402
  8. PARACETAMOL [Concomitant]
     Active Substance: ACETAMINOPHEN
     Dosage: 1000 MG, ONCE
     Route: 048
     Dates: start: 20200407, end: 20200407
  9. ESOMEPRAZOLE. [Concomitant]
     Active Substance: ESOMEPRAZOLE MAGNESIUM
     Indication: GASTROOESOPHAGEAL REFLUX DISEASE
     Dosage: 20 MG, QD
     Route: 048
     Dates: start: 20181116
  10. RASBURICASE [Concomitant]
     Active Substance: RASBURICASE
     Indication: BLOOD GROWTH HORMONE
     Dosage: 3 MG, ONCE
     Route: 042
     Dates: start: 20200402
  11. CLEMASTINE [Concomitant]
     Active Substance: CLEMASTINE
     Indication: ANTIALLERGIC THERAPY
     Dosage: 2 MG, ONCE
     Route: 042
     Dates: start: 20200407, end: 20200407
  12. SODIUM CHLORIDE. [Concomitant]
     Active Substance: SODIUM CHLORIDE
     Indication: FLUID REPLACEMENT
     Dosage: 1000 ML (TOTAL)
     Route: 065
     Dates: start: 20200402, end: 20200402
  13. SALBUTAMOL [Concomitant]
     Active Substance: ALBUTEROL
     Indication: DYSPNOEA EXERTIONAL
     Dosage: 2.5 MG, ONCE
     Route: 055
     Dates: start: 20200622
  14. PARACETAMOL [Concomitant]
     Active Substance: ACETAMINOPHEN
     Indication: PRODUCT USED FOR UNKNOWN INDICATION
     Dosage: UNK
     Route: 065
     Dates: start: 20200403, end: 20200403
  15. SALBUTAMOL [Concomitant]
     Active Substance: ALBUTEROL
     Indication: BLOOD GROWTH HORMONE
     Dosage: 2.5 MG, ONCE
     Route: 055
     Dates: start: 20200406, end: 20200406

REACTIONS (13)
  - Cytokine release syndrome [Recovered/Resolved]
  - Febrile neutropenia [Recovered/Resolved]
  - Arthralgia [Not Recovered/Not Resolved]
  - Upper respiratory tract infection [Recovered/Resolved]
  - Oedema peripheral [Not Recovered/Not Resolved]
  - Peripheral coldness [Recovered/Resolved]
  - Headache [Recovered/Resolved]
  - Non-cardiac chest pain [Recovered/Resolved]
  - Neutrophil count decreased [Recovered/Resolved]
  - Dyspnoea exertional [Recovered/Resolved]
  - Fatigue [Recovered/Resolved]
  - Vomiting [Recovered/Resolved]
  - Stomatitis [Recovered/Resolved]

NARRATIVE: CASE EVENT DATE: 20200302
